FAERS Safety Report 6472465-5 (Version None)
Quarter: 2009Q4

REPORT INFORMATION
  Report Type: 
  Country: None (occurrence: None)
  Receive Date: 20091201
  Receipt Date: 20091118
  Transmission Date: 20100525
  Serious: No
  Sender: FDA-Public Use
  Company Number: US024917

PATIENT
  Age: 67 Year
  Sex: Male
  Weight: 61.6892 kg

DRUGS (7)
  1. FENTORA [Suspect]
     Indication: PAIN
     Dosage: 600 M CG,Q 3-6 HRS PRN, BU, 800 MCG, BU, 600 MCG, EVERY 3 HRS AS NEEDED, BU
     Route: 002
     Dates: start: 20071001, end: 20080801
  2. FENTORA [Suspect]
     Indication: PAIN
     Dosage: 600 M CG,Q 3-6 HRS PRN, BU, 800 MCG, BU, 600 MCG, EVERY 3 HRS AS NEEDED, BU
     Route: 002
     Dates: start: 20080801
  3. FENTORA [Suspect]
     Indication: PAIN
     Dosage: 600 M CG,Q 3-6 HRS PRN, BU, 800 MCG, BU, 600 MCG, EVERY 3 HRS AS NEEDED, BU
     Route: 002
     Dates: start: 20080801
  4. CODEINE   (CODEINE)  (30 MILLIGRAM) [Concomitant]
  5. SYNTHROID [Concomitant]
  6. BLOOD PRESSURE MEDICATION (ANTIHYPERTENSIVES) [Concomitant]
  7. KADIAN (MORPHINE SULFATE) (TABLETS) [Concomitant]

REACTIONS (5)
  - DRUG EFFECT DECREASED [None]
  - DRUG PRESCRIBING ERROR [None]
  - DRUG TOLERANCE [None]
  - GINGIVITIS [None]
  - WRONG TECHNIQUE IN DRUG USAGE PROCESS [None]
